FAERS Safety Report 21064144 (Version 1)
Quarter: 2022Q3

REPORT INFORMATION
  Report Type: Spontaneous
  Country: BR (occurrence: BR)
  Receive Date: 20220711
  Receipt Date: 20220711
  Transmission Date: 20221026
  Serious: Yes (Other)
  Sender: FDA-Public Use
  Company Number: BR-NOVARTISPH-NVSC2022BR134975

PATIENT
  Sex: Female
  Weight: 53 kg

DRUGS (2)
  1. PARLODEL [Suspect]
     Active Substance: BROMOCRIPTINE MESYLATE
     Indication: Prolactin-producing pituitary tumour
     Dosage: UNK UNK, QD (1.5 TO 2 DOSAGE FORM) (12 YEARS OLD, SINCE PUBERTY) (STOP DATE WAS REPORTED AS MUST TAK
     Route: 048
  2. PARLODEL [Suspect]
     Active Substance: BROMOCRIPTINE MESYLATE
     Indication: Migraine

REACTIONS (4)
  - Prolactin-producing pituitary tumour [Unknown]
  - Product availability issue [Unknown]
  - Migraine [Not Recovered/Not Resolved]
  - Product use in unapproved indication [Unknown]
